FAERS Safety Report 5652990-7 (Version None)
Quarter: 2008Q1

REPORT INFORMATION
  Report Type: 
  Country: None (occurrence: None)
  Receive Date: 20080306
  Receipt Date: 20080228
  Transmission Date: 20080703
  Serious: Yes (Hospitalization)
  Sender: FDA-Public Use
  Company Number: JP-AVENTIS-200810639JP

PATIENT

DRUGS (4)
  1. LASIX [Suspect]
     Route: 048
     Dates: start: 20080226
  2. ARTIST [Suspect]
  3. ASPIRIN [Concomitant]
  4. ALDACTONE [Concomitant]

REACTIONS (2)
  - HEPATITIS FULMINANT [None]
  - HEPATOCELLULAR INJURY [None]
